FAERS Safety Report 7623423 (Version 9)
Quarter: 2021Q1

REPORT INFORMATION
  Report Type: Spontaneous
  Country: GB (occurrence: GB)
  Receive Date: 20101011
  Receipt Date: 20210308
  Transmission Date: 20210420
  Serious: Yes (Death, Life-Threatening, Hospitalization, Other)
  Sender: FDA-Public Use
  Company Number: GB-SANOFI-AVENTIS-200213159GDDC

PATIENT
  Age: 75 Year
  Sex: Female
  Weight: 62.6 kg

DRUGS (16)
  1. DILTIAZEM HYDROCHLORIDE. [Suspect]
     Active Substance: DILTIAZEM HYDROCHLORIDE
     Indication: HYPERTENSION
     Dosage: DOSE AS USED: UNK
     Dates: start: 20020301, end: 200203
  2. ACETYLSALICYLIC ACID [Suspect]
     Active Substance: ASPIRIN
     Indication: PAIN
     Dosage: DOSE AS USED: UNK
     Dates: start: 20020301
  3. GLYCERYL TRINITRATE [Suspect]
     Active Substance: NITROGLYCERIN
     Indication: PAIN
     Dosage: DOSE AS USED: UMNK
     Route: 048
     Dates: start: 20020301
  4. PANCURONIUM BROMIDE. [Suspect]
     Active Substance: PANCURONIUM BROMIDE
     Indication: MUSCLE RELAXANT THERAPY
     Dosage: DOSE AS USED: UNK
     Dates: start: 20020301, end: 200203
  5. LANSOPRAZOLE. [Suspect]
     Active Substance: LANSOPRAZOLE
     Indication: DUODENAL ULCER
     Dosage: DOSE AS USED: UNK
     Dates: start: 20020301
  6. ATORVASTATIN [Suspect]
     Active Substance: ATORVASTATIN
     Indication: HYPERCHOLESTEROLAEMIA
     Dosage: DOSE AS USED: UNK
     Route: 048
     Dates: start: 1999
  7. FENTANYL. [Suspect]
     Active Substance: FENTANYL
     Indication: ANAESTHESIA
     Dosage: DOSE AS USED: UNK
     Route: 042
     Dates: start: 200203, end: 200203
  8. CODEINE PHOSPHATE/PARACETAMOL [Suspect]
     Active Substance: ACETAMINOPHEN\CODEINE PHOSPHATE
     Indication: RHEUMATOID ARTHRITIS
     Dosage: DOSE AS USED
     Dates: start: 20020301
  9. PROPOFOL. [Suspect]
     Active Substance: PROPOFOL
     Indication: ANAESTHESIA
     Dosage: DOSE AS USED: UNK
     Route: 042
     Dates: start: 20020301, end: 200203
  10. ARAVA [Suspect]
     Active Substance: LEFLUNOMIDE
     Indication: RHEUMATOID ARTHRITIS
     Dosage: 20 MG,UNK
     Route: 048
     Dates: start: 200203, end: 200203
  11. MIDAZOLAM. [Suspect]
     Active Substance: MIDAZOLAM
     Indication: ANAESTHESIA
     Dosage: DOSE AS USED: UNK
     Route: 042
     Dates: start: 200203, end: 200203
  12. DIPRIVAN [Concomitant]
     Active Substance: PROPOFOL
     Indication: MAINTENANCE OF ANAESTHESIA
  13. BUDESONIDE. [Suspect]
     Active Substance: BUDESONIDE
     Indication: ASTHMA
     Dosage: DOSE AS USED: UNK
     Route: 055
     Dates: start: 20020301
  14. LISINOPRIL. [Suspect]
     Active Substance: LISINOPRIL
     Indication: HYPERTENSION
     Dosage: DOSE AS USED: UNK
     Route: 048
     Dates: start: 20020301
  15. QUININE SULFATE. [Suspect]
     Active Substance: QUININE SULFATE
     Indication: MUSCLE SPASMS
     Dosage: DOSE AS USED: UNK
  16. FLIXONASE [Concomitant]
     Active Substance: FLUTICASONE PROPIONATE
     Dosage: 1 UG,BID
     Route: 045

REACTIONS (20)
  - Myocardial ischaemia [Fatal]
  - Gastrointestinal haemorrhage [Fatal]
  - Renal impairment [Fatal]
  - Muscle relaxant therapy [Fatal]
  - Acute hepatic failure [Fatal]
  - Duodenal ulcer [Fatal]
  - Hepatocellular injury [Fatal]
  - Intestinal ischaemia [Unknown]
  - Diverticulitis [Unknown]
  - Multiple organ dysfunction syndrome [Fatal]
  - Coronary artery disease [Unknown]
  - Abdominal rigidity [Unknown]
  - Hypovolaemia [Fatal]
  - Haematemesis [Fatal]
  - Hepatic ischaemia [Fatal]
  - Renal failure [Fatal]
  - Coagulopathy [Fatal]
  - Labile blood pressure [Fatal]
  - Hepatorenal syndrome [Fatal]
  - Abdominal pain upper [Unknown]

NARRATIVE: CASE EVENT DATE: 2002
